FAERS Safety Report 18130928 (Version 3)
Quarter: 2020Q3

REPORT INFORMATION
  Report Type: Spontaneous
  Country: US (occurrence: US)
  Receive Date: 20200810
  Receipt Date: 20200819
  Transmission Date: 20201103
  Serious: No
  Sender: FDA-Public Use
  Company Number: US-PFIZER INC-2020303925

PATIENT
  Age: 8 Year
  Sex: Female
  Weight: 26.49 kg

DRUGS (1)
  1. GENOTROPIN [Suspect]
     Active Substance: SOMATROPIN
     Indication: TURNER^S SYNDROME
     Dosage: 1 MG, 1X/DAY, (1MG INJECTION ONCE A DAY AT NIGHT)
     Dates: start: 2020

REACTIONS (4)
  - Wrong technique in device usage process [Unknown]
  - Underdose [Unknown]
  - Injection site pain [Unknown]
  - Reaction to preservatives [Unknown]
